FAERS Safety Report 24244020 (Version 1)
Quarter: 2024Q3

REPORT INFORMATION
  Report Type: Spontaneous
  Country: US (occurrence: None)
  Receive Date: 20240823
  Receipt Date: 20240823
  Transmission Date: 20241016
  Serious: Yes (Other)
  Sender: EMMAUS LIFE SCIENCES
  Company Number: US-Emmaus Medical, Inc.-EMM202311-000390

PATIENT
  Age: 58 Year
  Sex: Male

DRUGS (4)
  1. ENDARI [Suspect]
     Active Substance: GLUTAMINE
     Indication: Sickle cell anaemia with crisis
     Dosage: 15 G
     Route: 048
     Dates: start: 202310
  2. ENDARI [Suspect]
     Active Substance: GLUTAMINE
     Dosage: 15 G
     Route: 048
     Dates: start: 20231112
  3. ENDARI [Suspect]
     Active Substance: GLUTAMINE
     Dosage: 15 G
     Route: 048
     Dates: start: 20231207
  4. DEFERASIROX [Concomitant]
     Active Substance: DEFERASIROX
     Indication: Product used for unknown indication
     Dosage: UNKNOWN
     Route: 065

REACTIONS (9)
  - Sickle cell anaemia with crisis [Unknown]
  - Abdominal discomfort [Recovering/Resolving]
  - Feeding disorder [Recovering/Resolving]
  - Decreased appetite [Recovered/Resolved]
  - Dysgeusia [Unknown]
  - Nausea [Recovered/Resolved]
  - Constipation [Recovering/Resolving]
  - Treatment noncompliance [Unknown]
  - Off label use [Unknown]

NARRATIVE: CASE EVENT DATE: 20230101
